FAERS Safety Report 21080597 (Version 4)
Quarter: 2022Q3

REPORT INFORMATION
  Report Type: Spontaneous
  Country: US (occurrence: US)
  Receive Date: 20220714
  Receipt Date: 20220907
  Transmission Date: 20221026
  Serious: Yes (Death, Other)
  Sender: FDA-Public Use
  Company Number: US-BRISTOL-MYERS SQUIBB COMPANY-2022-071235

PATIENT
  Age: 63 Year
  Sex: Male

DRUGS (8)
  1. ELIQUIS [Suspect]
     Active Substance: APIXABAN
     Indication: Cerebrovascular accident prophylaxis
     Route: 048
     Dates: start: 20220114
  2. MORPHINE [Concomitant]
     Active Substance: MORPHINE
     Indication: Pain
     Dosage: HALF TABLET IN MORNING AND ONE TABLET AT NIGHT
     Route: 048
     Dates: start: 20220401, end: 20220408
  3. TESSALON [Concomitant]
     Active Substance: BENZONATATE
     Indication: Cough
     Dosage: THREE TIMES A DAY
     Route: 048
     Dates: start: 20220401, end: 20220501
  4. FLEXERIL [Concomitant]
     Active Substance: CYCLOBENZAPRINE HYDROCHLORIDE
     Indication: Muscle spasms
     Dosage: 3 TIMES A DAY AS NECESSARY
     Route: 048
     Dates: start: 20220401, end: 20220501
  5. COMPAZINE [Concomitant]
     Active Substance: PROCHLORPERAZINE MALEATE
     Indication: Nausea
     Dosage: AS NECESSARY
     Route: 048
     Dates: start: 20220324, end: 20220501
  6. COMPAZINE [Concomitant]
     Active Substance: PROCHLORPERAZINE MALEATE
     Indication: Vomiting
  7. ATIVAN [Concomitant]
     Active Substance: LORAZEPAM
     Indication: Anxiety
     Dosage: AS NECESSARY
     Route: 048
     Dates: end: 20220501
  8. METFORMIN [Concomitant]
     Active Substance: METFORMIN HYDROCHLORIDE
     Indication: Diabetes mellitus
     Route: 048
     Dates: start: 20211123, end: 20220501

REACTIONS (1)
  - Lung adenocarcinoma [Fatal]
